FAERS Safety Report 5272974-0 (Version None)
Quarter: 2007Q1

REPORT INFORMATION
  Report Type: 
  Country: None (occurrence: None)
  Receive Date: 20070322
  Receipt Date: 20070312
  Transmission Date: 20070707
  Serious: Yes (Hospitalization, Other)
  Sender: FDA-Public Use
  Company Number: US-PFIZER INC-2006149018

PATIENT
  Sex: Female
  Weight: 63.5 kg

DRUGS (2)
  1. BEXTRA [Suspect]
     Indication: PAIN IN EXTREMITY
     Route: 048
     Dates: start: 20040101, end: 20040901
  2. BEXTRA [Suspect]
     Indication: INFLAMMATION

REACTIONS (1)
  - CEREBROVASCULAR ACCIDENT [None]
